FAERS Safety Report 11381635 (Version 1)
Quarter: 2015Q3

REPORT INFORMATION
  Report Type: Spontaneous
  Country: NL (occurrence: NL)
  Receive Date: 20150814
  Receipt Date: 20150814
  Transmission Date: 20151125
  Serious: Yes (Other)
  Sender: FDA-Public Use
  Company Number: NL-PFIZER INC-2015269016

PATIENT
  Age: 75 Year
  Sex: Female

DRUGS (2)
  1. PANTOPRAZOLE [Suspect]
     Active Substance: PANTOPRAZOLE SODIUM
     Indication: PROPHYLAXIS AGAINST GASTROINTESTINAL ULCER
     Dosage: 40 MG, DAILY (QD)
     Route: 048
     Dates: start: 20150526, end: 20150803
  2. CARBASALAATCALCIUM [Concomitant]
     Active Substance: CARBASALATE
     Dosage: 100 MG, UNK
     Route: 048
     Dates: start: 20150526

REACTIONS (1)
  - Nephritis [Recovered/Resolved]

NARRATIVE: CASE EVENT DATE: 20150731
